FAERS Safety Report 26124647 (Version 1)
Quarter: 2025Q4

REPORT INFORMATION
  Report Type: Spontaneous
  Country: JP (occurrence: JP)
  Receive Date: 20251205
  Receipt Date: 20251205
  Transmission Date: 20260117
  Serious: Yes (Other)
  Sender: TEVA
  Company Number: JP-MMM-Otsuka-UEM39KDC

PATIENT
  Sex: Female

DRUGS (2)
  1. FREMANEZUMAB [Suspect]
     Active Substance: FREMANEZUMAB
     Indication: Migraine
     Dosage: UNK (ABDOMEN)
     Route: 058
  2. FREMANEZUMAB [Suspect]
     Active Substance: FREMANEZUMAB
     Indication: Migraine
     Dosage: UNK (THIGH)
     Route: 058

REACTIONS (3)
  - Ileus [Unknown]
  - Injection site pruritus [Unknown]
  - Injection site swelling [Recovering/Resolving]
